FAERS Safety Report 19948722 (Version 3)
Quarter: 2021Q4

REPORT INFORMATION
  Report Type: Spontaneous
  Country: US (occurrence: US)
  Receive Date: 20211012
  Receipt Date: 20211031
  Transmission Date: 20220303
  Serious: No
  Sender: FDA-Public Use
  Company Number: US-ORGANON-O2110USA000609

PATIENT
  Age: 18 Year
  Sex: Female
  Weight: 78.458 kg

DRUGS (2)
  1. NEXPLANON [Suspect]
     Active Substance: ETONOGESTREL
     Indication: Contraception
     Dosage: 1 IMPLANT IN LEFT ARM
     Dates: start: 20210907, end: 20210907
  2. NEXPLANON [Suspect]
     Active Substance: ETONOGESTREL
     Indication: Contraception
     Dosage: UNK, LEFT ARM
     Route: 059
     Dates: start: 20210908

REACTIONS (5)
  - Implant site pain [Recovered/Resolved]
  - Libido decreased [Recovering/Resolving]
  - Complication of device insertion [Recovered/Resolved]
  - Product quality issue [Unknown]
  - Anorgasmia [Unknown]

NARRATIVE: CASE EVENT DATE: 20210907
